FAERS Safety Report 12115542 (Version 2)
Quarter: 2016Q1

REPORT INFORMATION
  Report Type: Spontaneous
  Country: US (occurrence: US)
  Receive Date: 20160225
  Receipt Date: 20160322
  Transmission Date: 20160526
  Serious: No
  Sender: FDA-Public Use
  Company Number: US-ELI_LILLY_AND_COMPANY-US201601010269

PATIENT
  Age: 62 Year
  Sex: Female
  Weight: 97.05 kg

DRUGS (2)
  1. HUMALOG [Concomitant]
     Active Substance: INSULIN LISPRO
     Indication: PRODUCT USED FOR UNKNOWN INDICATION
     Dosage: UNK, UNKNOWN
     Route: 065
  2. TRULICITY [Suspect]
     Active Substance: DULAGLUTIDE
     Indication: TYPE 2 DIABETES MELLITUS
     Dosage: 1.5 MG, WEEKLY (1/W)
     Route: 065
     Dates: start: 201505, end: 20151201

REACTIONS (3)
  - Amylase increased [Recovering/Resolving]
  - Weight increased [Recovering/Resolving]
  - Lactose intolerance [Recovering/Resolving]

NARRATIVE: CASE EVENT DATE: 201512
